FAERS Safety Report 9499529 (Version 1)
Quarter: 2013Q1

REPORT INFORMATION
  Report Type: Spontaneous
  Country: US (occurrence: None)
  Receive Date: 20130107
  Receipt Date: 20130107
  Transmission Date: 20140127
  Serious: No
  Sender: FDA-Public Use
  Company Number: PHEH2012US022509

PATIENT
  Age: 29 Year
  Sex: Female

DRUGS (7)
  1. GILENYA [Suspect]
     Indication: MULTIPLE SCLEROSIS
     Route: 048
     Dates: start: 20121102
  2. NEURONTIN ( GABAPENTIN) [Concomitant]
  3. DEPAKOTE ( VALPROATE SEMISODIUM) [Concomitant]
  4. BUSPAR ( BUSPIRONE HYDROCHLORIDE) [Concomitant]
  5. NAPROXEN ( NAPROXEN) [Concomitant]
  6. ORTHO TRI-CYCLEN ( ETHINYLESTRADIOL, NORGESTIMATE) [Concomitant]
  7. SIMVASTATIN ( SIMVASTATIN) [Concomitant]

REACTIONS (7)
  - Tremor [None]
  - Chest pain [None]
  - Anxiety [None]
  - Chest discomfort [None]
  - Weight decreased [None]
  - Visual impairment [None]
  - Multiple sclerosis relapse [None]
